FAERS Safety Report 10512927 (Version 3)
Quarter: 2016Q1

REPORT INFORMATION
  Report Type: Report from Study
  Country: NL (occurrence: NL)
  Receive Date: 20141013
  Receipt Date: 20160317
  Transmission Date: 20160525
  Serious: Yes (Death, Life-Threatening, Hospitalization)
  Sender: FDA-Public Use
  Company Number: NL-ROCHE-1471384

PATIENT
  Age: 72 Year
  Sex: Male

DRUGS (7)
  1. ENALAPRIL [Concomitant]
     Active Substance: ENALAPRIL
     Route: 065
     Dates: start: 20141023
  2. PANTOPRAZOLE SODIUM. [Concomitant]
     Active Substance: PANTOPRAZOLE SODIUM
     Route: 065
     Dates: start: 20141024
  3. OXALIPLATIN. [Suspect]
     Active Substance: OXALIPLATIN
     Indication: GASTRIC CANCER
     Dosage: LAST DOSE PRIOR TO SAE: 24/SEP/2014, CUMULATIVE DOSE: 440 MG
     Route: 042
     Dates: start: 20140905
  4. NITRENDIPINE [Concomitant]
     Active Substance: NITRENDIPINE
     Route: 065
     Dates: start: 20141023
  5. PARACETAMOL [Concomitant]
     Active Substance: ACETAMINOPHEN
     Route: 042
     Dates: start: 20141023
  6. CAPECITABINE. [Suspect]
     Active Substance: CAPECITABINE
     Indication: GASTRIC CANCER
     Dosage: LAST DOSE PRIOR TO SAE: 30/SEP/2014, CUMULATIVE DOSE: 45 MG, FREQUENCY: BID FOR 3 WEEKS
     Route: 048
     Dates: start: 20140905
  7. EPIRUBICIN [Suspect]
     Active Substance: EPIRUBICIN
     Indication: GASTRIC CANCER
     Dosage: LAST DOSE PRIOR TO SAE: 24/SEP/2014, CUMULATIVE DOSE: 170 MG
     Route: 042
     Dates: start: 20140905

REACTIONS (4)
  - Mesenteric vein thrombosis [Recovered/Resolved]
  - Thrombosis mesenteric vessel [Recovered/Resolved]
  - Intestinal ischaemia [Recovered/Resolved]
  - Gastrointestinal anastomotic leak [Fatal]

NARRATIVE: CASE EVENT DATE: 20141001
